FAERS Safety Report 7114352-5 (Version None)
Quarter: 2010Q4

REPORT INFORMATION
  Report Type: 
  Country: None (occurrence: None)
  Receive Date: 20101119
  Receipt Date: 20101108
  Transmission Date: 20110411
  Serious: Yes (Hospitalization, Other)
  Sender: FDA-Public Use
  Company Number: US-ELI_LILLY_AND_COMPANY-US201011002738

PATIENT
  Sex: Male

DRUGS (4)
  1. HUMALOG [Suspect]
     Indication: DIABETES MELLITUS
  2. CRESTOR [Concomitant]
  3. PLAVIX [Concomitant]
  4. NOVOLOG [Concomitant]

REACTIONS (3)
  - CARDIAC DISORDER [None]
  - CORONARY ARTERY OCCLUSION [None]
  - SENSATION OF PRESSURE [None]
